FAERS Safety Report 5029020-3 (Version None)
Quarter: 2006Q2

REPORT INFORMATION
  Report Type: 
  Country: None (occurrence: None)
  Receive Date: 20060501
  Receipt Date: 20060323
  Transmission Date: 20061013
  Serious: Yes (Hospitalization)
  Sender: FDA-Public Use
  Company Number: 200611838BWH

PATIENT
  Age: 63 Year
  Sex: Male

DRUGS (9)
  1. NEXAVAR [Suspect]
     Indication: RENAL CELL CARCINOMA STAGE UNSPECIFIED
     Dosage: 200 MG, BID, ORAL
     Route: 048
     Dates: start: 20060127, end: 20060128
  2. ATENOLOL [Concomitant]
  3. GLIPIZIDE [Concomitant]
  4. AVANDIA [Concomitant]
  5. ALTACE [Concomitant]
  6. ASPIRIN [Concomitant]
  7. B6 [Concomitant]
  8. B12 [Concomitant]
  9. FOLIC ACID [Concomitant]

REACTIONS (2)
  - ABDOMINAL PAIN [None]
  - PANCREATITIS [None]
